FAERS Safety Report 16482285 (Version 1)
Quarter: 2019Q2

REPORT INFORMATION
  Report Type: Spontaneous
  Country: DE (occurrence: DE)
  Receive Date: 20190627
  Receipt Date: 20190627
  Transmission Date: 20190711
  Serious: Yes (Other)
  Sender: FDA-Public Use
  Company Number: DE-TEVA-2019-DE-1069616

PATIENT
  Age: 39 Year
  Sex: Female
  Weight: 80 kg

DRUGS (2)
  1. CLOZAPIN [Suspect]
     Active Substance: CLOZAPINE
     Indication: SUBSTANCE-INDUCED PSYCHOTIC DISORDER
     Dosage: 50 MILLIGRAM DAILY; 50 [MG/D ]
     Route: 048
     Dates: start: 20180403, end: 20190112
  2. FEMIBION [CALCIUM PHOSPHATE DIBASIC\FERROUS SUCCINATE\MAGNESIUM HYDROXIDE] [Concomitant]
     Active Substance: CALCIUM PHOSPHATE, DIBASIC, ANHYDROUS\FERROUS SUCCINATE\MAGNESIUM HYDROXIDE
     Indication: PROPHYLAXIS OF NEURAL TUBE DEFECT
     Dosage: .4 MILLIGRAM DAILY; 0.4 [MG/D ]
     Route: 048
     Dates: start: 20180403, end: 20190112

REACTIONS (2)
  - Exposure during pregnancy [Unknown]
  - Gestational diabetes [Recovered/Resolved]
